FAERS Safety Report 13603095 (Version 2)
Quarter: 2017Q2

REPORT INFORMATION
  Report Type: Spontaneous
  Country: IE (occurrence: IE)
  Receive Date: 20170601
  Receipt Date: 20170602
  Transmission Date: 20170830
  Serious: Yes (Hospitalization)
  Sender: FDA-Public Use
  Company Number: IE-SA-2017SA093620

PATIENT
  Age: 1 Month
  Sex: Male
  Weight: 3.82 kg

DRUGS (4)
  1. LANTUS [Suspect]
     Active Substance: INSULIN GLARGINE
     Dosage: DOSE:19 UNIT(S)
     Route: 063
     Dates: start: 20170204
  2. NOVORAPID [Suspect]
     Active Substance: INSULIN ASPART
     Dosage: DOSE:1 UNIT(S)
     Route: 064
     Dates: start: 20160501, end: 20170204
  3. LANTUS [Suspect]
     Active Substance: INSULIN GLARGINE
     Dosage: DOSE:19 UNIT(S)
     Route: 064
     Dates: start: 20160501, end: 20170204
  4. NOVORAPID [Suspect]
     Active Substance: INSULIN ASPART
     Dosage: DOSE:1 UNIT(S)
     Route: 063
     Dates: start: 20170204

REACTIONS (5)
  - Foetal exposure during pregnancy [Unknown]
  - Neonatal respiratory distress syndrome [Unknown]
  - Seizure [Recovered/Resolved]
  - Exposure during breast feeding [Unknown]
  - Hypoglycaemia neonatal [Recovered/Resolved]

NARRATIVE: CASE EVENT DATE: 20170204
